FAERS Safety Report 24763332 (Version 1)
Quarter: 2024Q4

REPORT INFORMATION
  Report Type: Spontaneous
  Country: US (occurrence: US)
  Receive Date: 20241222
  Receipt Date: 20241222
  Transmission Date: 20250114
  Serious: No
  Sender: BAUSCH AND LOMB
  Company Number: US-BAUSCHBL-2024BNL038877

PATIENT
  Sex: Female

DRUGS (7)
  1. ALAWAY [Suspect]
     Active Substance: KETOTIFEN FUMARATE
     Indication: Hypersensitivity
     Route: 047
  2. ALAWAY [Suspect]
     Active Substance: KETOTIFEN FUMARATE
     Indication: Ocular hyperaemia
  3. ALAWAY [Suspect]
     Active Substance: KETOTIFEN FUMARATE
     Indication: Eye irritation
  4. ALAWAY PRESERVATIVE FREE [Suspect]
     Active Substance: KETOTIFEN FUMARATE
     Indication: Hypersensitivity
     Route: 047
  5. ALAWAY PRESERVATIVE FREE [Suspect]
     Active Substance: KETOTIFEN FUMARATE
     Indication: Ocular hyperaemia
  6. ALAWAY PRESERVATIVE FREE [Suspect]
     Active Substance: KETOTIFEN FUMARATE
     Indication: Eye irritation
  7. CARBOXYMETHYLCELLULOSE [Suspect]
     Active Substance: CARBOXYMETHYLCELLULOSE
     Indication: Product used for unknown indication
     Route: 065

REACTIONS (6)
  - Vision blurred [Unknown]
  - Eye irritation [Unknown]
  - Dry eye [Unknown]
  - Drug intolerance [Unknown]
  - Product availability issue [Unknown]
  - Expired product administered [Unknown]
